FAERS Safety Report 5921597-6 (Version None)
Quarter: 2008Q3

REPORT INFORMATION
  Report Type: 
  Country: None (occurrence: None)
  Receive Date: 20080909
  Receipt Date: 20070828
  Transmission Date: 20090109
  Serious: Yes (Hospitalization)
  Sender: FDA-Public Use
  Company Number: 163-20785-07061171

PATIENT
  Age: 77 Year
  Sex: Male

DRUGS (12)
  1. THALOMID [Suspect]
     Indication: MULTIPLE MYELOMA
     Dosage: 100 MG, 1 IN 1 D, ORAL ; 200 MG, 2 IN 1 D, ORAL ; 100 MG, DAILY, ORAL ; 200 MG, 2 IN 1 D, ORAL
     Route: 048
     Dates: start: 20070522, end: 20070527
  2. THALOMID [Suspect]
     Indication: MULTIPLE MYELOMA
     Dosage: 100 MG, 1 IN 1 D, ORAL ; 200 MG, 2 IN 1 D, ORAL ; 100 MG, DAILY, ORAL ; 200 MG, 2 IN 1 D, ORAL
     Route: 048
     Dates: start: 20070527, end: 20070601
  3. THALOMID [Suspect]
     Indication: MULTIPLE MYELOMA
     Dosage: 100 MG, 1 IN 1 D, ORAL ; 200 MG, 2 IN 1 D, ORAL ; 100 MG, DAILY, ORAL ; 200 MG, 2 IN 1 D, ORAL
     Route: 048
     Dates: start: 20070613, end: 20070701
  4. THALOMID [Suspect]
     Indication: MULTIPLE MYELOMA
     Dosage: 100 MG, 1 IN 1 D, ORAL ; 200 MG, 2 IN 1 D, ORAL ; 100 MG, DAILY, ORAL ; 200 MG, 2 IN 1 D, ORAL
     Route: 048
     Dates: start: 20070801
  5. DECADRON [Concomitant]
  6. ZOMETA [Concomitant]
  7. PROCRIT [Concomitant]
  8. FLOMAX [Concomitant]
  9. DETROL [Concomitant]
  10. ZOCOR [Concomitant]
  11. ATENOLOL [Concomitant]
  12. ASPIRIN [Concomitant]

REACTIONS (6)
  - BLOOD COUNT ABNORMAL [None]
  - DIZZINESS [None]
  - FATIGUE [None]
  - HYPOTENSION [None]
  - PNEUMONIA [None]
  - PYREXIA [None]
